FAERS Safety Report 5426453-8 (Version None)
Quarter: 2007Q3

REPORT INFORMATION
  Report Type: 
  Country: None (occurrence: None)
  Receive Date: 20070827
  Receipt Date: 20070822
  Transmission Date: 20080115
  Serious: Yes (Hospitalization, Other)
  Sender: FDA-Public Use
  Company Number: US-PFIZER INC-2005071783

PATIENT
  Sex: Female
  Weight: 97.5 kg

DRUGS (8)
  1. BEXTRA [Suspect]
     Indication: ARTHRITIS
     Route: 048
     Dates: start: 20030101, end: 20040101
  2. BEXTRA [Suspect]
     Indication: FIBROMYALGIA
  3. BEXTRA [Suspect]
     Indication: SPINAL COLUMN STENOSIS
  4. LYRICA [Suspect]
     Indication: FIBROMYALGIA
  5. VIOXX [Concomitant]
     Route: 048
  6. SYNTHROID [Concomitant]
     Route: 048
  7. HYGROTON [Concomitant]
     Route: 065
  8. ZESTRIL [Concomitant]
     Route: 048

REACTIONS (8)
  - DRY MOUTH [None]
  - FATIGUE [None]
  - MYOCARDIAL INFARCTION [None]
  - OEDEMA PERIPHERAL [None]
  - PAIN [None]
  - VENTRICULAR FIBRILLATION [None]
  - VISION BLURRED [None]
  - WEIGHT INCREASED [None]
